FAERS Safety Report 8344362-1 (Version None)
Quarter: 2012Q1

REPORT INFORMATION
  Report Type: 
  Country: None (occurrence: None)
  Receive Date: 20120315
  Receipt Date: 20110510
  Transmission Date: 20120608
  Serious: No
  Sender: FDA-Public Use
  Company Number: PHHY2011US40194

PATIENT
  Age: 39 Year
  Sex: Female
  Weight: 54.4 kg

DRUGS (3)
  1. GILENYA [Suspect]
     Dosage: ORAL
     Route: 048
     Dates: start: 20110201, end: 20110421
  2. AMPYRA [Suspect]
     Dosage: 10 MG, BID, ORAL
     Route: 048
     Dates: start: 20110201, end: 20110422
  3. LABETALOL HCL [Concomitant]

REACTIONS (2)
  - ABDOMINAL DISCOMFORT [None]
  - NAUSEA [None]
